FAERS Safety Report 5033704-0 (Version None)
Quarter: 2006Q2

REPORT INFORMATION
  Report Type: 
  Country: None (occurrence: None)
  Receive Date: 20060623
  Receipt Date: 20060608
  Transmission Date: 20061013
  Serious: Yes (Other)
  Sender: FDA-Public Use
  Company Number: US-SANOFI-SYNTHELABO-A03200603691

PATIENT
  Sex: Female

DRUGS (15)
  1. AMBIEN CR [Suspect]
     Indication: INSOMNIA
     Route: 048
     Dates: start: 20060101, end: 20060605
  2. PREVACID [Concomitant]
     Dosage: UNK
     Route: 048
  3. CARDIZEM [Concomitant]
     Dosage: UNK
     Route: 048
  4. FOSAMAX [Concomitant]
     Dosage: UNK
     Route: 048
  5. ADVAIR DISKUS 100/50 [Concomitant]
     Dosage: UNK
     Route: 048
  6. SINGULAIR [Concomitant]
     Dosage: UNK
     Route: 048
  7. ESTRADIOL PATCH [Concomitant]
     Dosage: UNK
     Route: 061
  8. ZYRTEC-D 12 HOUR [Concomitant]
     Dosage: UNK
     Route: 048
  9. LEXAPRO [Concomitant]
     Dosage: UNK
     Route: 048
  10. HYDROCHLOROTHIAZIDE [Concomitant]
     Dosage: UNK
     Route: 048
  11. VYTORIN [Concomitant]
     Dosage: UNK
     Route: 048
  12. FOL-B [Concomitant]
     Dosage: UNK
     Route: 065
  13. KLOR-CON [Concomitant]
     Dosage: UNK
     Route: 048
  14. COUMADIN [Concomitant]
     Dosage: UNK
     Route: 048
  15. NIRAVAM [Concomitant]
     Dosage: UNK
     Route: 065

REACTIONS (9)
  - ABNORMAL BEHAVIOUR [None]
  - AGGRESSION [None]
  - CONVULSION [None]
  - DIZZINESS [None]
  - FEELING HOT [None]
  - HYPERHIDROSIS [None]
  - MALAISE [None]
  - SLEEP TALKING [None]
  - SLEEP WALKING [None]
